FAERS Safety Report 5796277-0 (Version None)
Quarter: 2008Q2

REPORT INFORMATION
  Report Type: 
  Country: None (occurrence: None)
  Receive Date: 20080626
  Receipt Date: 20080611
  Transmission Date: 20081010
  Serious: Yes (Death, Hospitalization)
  Sender: FDA-Public Use
  Company Number: 2008AL005383

PATIENT
  Age: 72 Year
  Sex: Female

DRUGS (1)
  1. DIGOXIN [Suspect]
     Indication: CARDIAC FAILURE CONGESTIVE
     Dosage: DAILY PO
     Route: 048

REACTIONS (4)
  - HYPERHIDROSIS [None]
  - INCONTINENCE [None]
  - PALPITATIONS [None]
  - RESPIRATORY FAILURE [None]
